FAERS Safety Report 24854434 (Version 2)
Quarter: 2025Q1

REPORT INFORMATION
  Report Type: Spontaneous
  Country: US (occurrence: US)
  Receive Date: 20250117
  Receipt Date: 20250307
  Transmission Date: 20250408
  Serious: Yes (Other)
  Sender: ALEXION PHARMACEUTICALS
  Company Number: US-AstraZeneca-CH-00783175A

PATIENT

DRUGS (4)
  1. SYMBICORT [Suspect]
     Active Substance: BUDESONIDE\FORMOTEROL FUMARATE DIHYDRATE
     Dosage: UNK UNK, BID
     Route: 065
  2. FASENRA [Suspect]
     Active Substance: BENRALIZUMAB
     Route: 065
  3. FASENRA [Suspect]
     Active Substance: BENRALIZUMAB
     Route: 065
  4. FASENRA [Suspect]
     Active Substance: BENRALIZUMAB
     Dosage: UNK, Q8W
     Route: 065

REACTIONS (7)
  - Cerebrovascular accident [Unknown]
  - Vomiting [Unknown]
  - Dyspnoea [Unknown]
  - Feeling abnormal [Unknown]
  - Condition aggravated [Unknown]
  - Drug ineffective [Unknown]
  - Inappropriate schedule of product administration [Unknown]
